FAERS Safety Report 5973076-8 (Version None)
Quarter: 2008Q4

REPORT INFORMATION
  Report Type: 
  Country: None (occurrence: None)
  Receive Date: 20081201
  Receipt Date: 20081121
  Transmission Date: 20090506
  Serious: Yes (Other)
  Sender: FDA-Public Use
  Company Number: DE-TEVA-181327ISR

PATIENT
  Sex: Male
  Weight: 64 kg

DRUGS (3)
  1. ETOPOSIDE [Suspect]
     Dates: start: 20071020, end: 20071022
  2. CARBOPLATIN [Suspect]
     Dates: start: 20071020, end: 20071022
  3. TREOSULFAN [Suspect]
     Dates: start: 20071020, end: 20071022

REACTIONS (3)
  - GASTROINTESTINAL HAEMORRHAGE [None]
  - MUCOSAL INFLAMMATION [None]
  - SEPSIS [None]
